FAERS Safety Report 16691435 (Version 1)
Quarter: 2019Q3

REPORT INFORMATION
  Report Type: Spontaneous
  Country: US (occurrence: US)
  Receive Date: 20190812
  Receipt Date: 20190812
  Transmission Date: 20191004
  Serious: No
  Sender: FDA-Public Use
  Company Number: US-009507513-1907USA013458

PATIENT
  Age: 14 Year
  Sex: Male

DRUGS (4)
  1. CETIRIZIN [Concomitant]
     Active Substance: CETIRIZINE HYDROCHLORIDE
     Indication: URTICARIA
     Dosage: 10 MILLIGRAM, TWICE DAILY
     Dates: start: 2017
  2. RANIDINE [Concomitant]
     Indication: URTICARIA
     Dosage: 150 MILLIGRAM, TWICE DAILY
     Dates: start: 2017
  3. SINGULAIR [Suspect]
     Active Substance: MONTELUKAST SODIUM
     Indication: URTICARIA
     Dosage: 5 MILLIGRAM, ONCE DAILY
     Route: 048
     Dates: start: 2017
  4. LORATADINE. [Concomitant]
     Active Substance: LORATADINE
     Indication: URTICARIA
     Dosage: 10 MILLIGRAM, TWICE DAILY
     Dates: start: 2017

REACTIONS (1)
  - Product use in unapproved indication [Unknown]

NARRATIVE: CASE EVENT DATE: 2017
